FAERS Safety Report 15389496 (Version 1)
Quarter: 2018Q3

REPORT INFORMATION
  Report Type: Spontaneous
  Country: US (occurrence: US)
  Receive Date: 20180917
  Receipt Date: 20180917
  Transmission Date: 20181010
  Serious: No
  Sender: FDA-Public Use
  Company Number: US-ASTRAZENECA-2018SF09185

PATIENT
  Age: 21848 Day
  Sex: Female
  Weight: 81.6 kg

DRUGS (1)
  1. BYDUREON BCISE [Suspect]
     Active Substance: EXENATIDE
     Indication: TYPE 2 DIABETES MELLITUS
     Route: 058
     Dates: start: 20180803

REACTIONS (7)
  - Device malfunction [Unknown]
  - Intentional product misuse [Recovered/Resolved]
  - Injection site pain [Recovered/Resolved]
  - Injection site haemorrhage [Recovered/Resolved]
  - Blood disorder [Recovered/Resolved]
  - Underdose [Unknown]
  - Device leakage [Unknown]

NARRATIVE: CASE EVENT DATE: 20180817
